FAERS Safety Report 6202372-4 (Version None)
Quarter: 2009Q2

REPORT INFORMATION
  Report Type: 
  Country: None (occurrence: None)
  Receive Date: 20090521
  Receipt Date: 20090521
  Transmission Date: 20091009
  Serious: Yes (Other)
  Sender: FDA-Public Use
  Company Number: None

PATIENT
  Age: 77 Year
  Sex: Female
  Weight: 52.1637 kg

DRUGS (1)
  1. OXYCODONE AND ACETAMINOPHEN [Suspect]
     Indication: PAIN
     Dosage: 1 OR 2 EVERY 6 HRS
     Dates: start: 20090325, end: 20090328

REACTIONS (6)
  - ABDOMINAL PAIN UPPER [None]
  - LIP PAIN [None]
  - NAUSEA [None]
  - ORAL PAIN [None]
  - OROPHARYNGEAL PAIN [None]
  - VOMITING [None]
